FAERS Safety Report 8758822 (Version 2)
Quarter: 2012Q4

REPORT INFORMATION
  Report Type: Spontaneous
  Country: DK (occurrence: None)
  Receive Date: 20120817
  Receipt Date: 20120912
  Transmission Date: 20130627
  Serious: Yes (Other)
  Sender: FDA-Public Use
  Company Number: 2012MA010125

PATIENT
  Age: 46 Year
  Sex: Female

DRUGS (1)
  1. CETIRIZINE HCL [Suspect]
     Indication: RHINITIS
     Route: 048
     Dates: start: 201202, end: 201202

REACTIONS (2)
  - Drug-induced liver injury [None]
  - Product substitution issue [None]
